FAERS Safety Report 21547130 (Version 1)
Quarter: 2022Q4

REPORT INFORMATION
  Report Type: Spontaneous
  Country: US (occurrence: US)
  Receive Date: 20221103
  Receipt Date: 20221103
  Transmission Date: 20230113
  Serious: No
  Sender: FDA-Public Use
  Company Number: US-BRISTOL-MYERS SQUIBB COMPANY-2022-131543

PATIENT
  Age: 69 Year
  Sex: Female

DRUGS (1)
  1. POMALYST [Suspect]
     Active Substance: POMALIDOMIDE
     Indication: Plasma cell myeloma
     Dosage: TAKE 1 CAPSULE BY MOUTH ONCE DAILY AT BEDTIME FOR 21 DAYS ON AND 7 DAYS OFF
     Route: 048
     Dates: start: 20221012

REACTIONS (4)
  - Rash [Unknown]
  - Pain in extremity [Unknown]
  - Pain [Unknown]
  - Skin exfoliation [Unknown]
